FAERS Safety Report 17469031 (Version 1)
Quarter: 2020Q1

REPORT INFORMATION
  Report Type: Spontaneous
  Country: CA (occurrence: CA)
  Receive Date: 20200227
  Receipt Date: 20200227
  Transmission Date: 20200409
  Serious: Yes (Other)
  Sender: FDA-Public Use
  Company Number: CA-TEVA-2020-CA-1189518

PATIENT
  Age: 39 Year
  Sex: Male

DRUGS (1)
  1. AMOXICILLIN. [Suspect]
     Active Substance: AMOXICILLIN
     Route: 065
     Dates: start: 20181003, end: 20181011

REACTIONS (5)
  - Frequent bowel movements [Unknown]
  - Abdominal discomfort [Unknown]
  - Diarrhoea haemorrhagic [Unknown]
  - Rectal tenesmus [Unknown]
  - Abdominal distension [Unknown]

NARRATIVE: CASE EVENT DATE: 201810
